FAERS Safety Report 12832429 (Version 1)
Quarter: 2016Q4

REPORT INFORMATION
  Report Type: Spontaneous
  Country: US (occurrence: US)
  Receive Date: 20161010
  Receipt Date: 20161010
  Transmission Date: 20170207
  Serious: No
  Sender: FDA-Public Use
  Company Number: US-JAZZ-2016-US-013313

PATIENT
  Sex: Female

DRUGS (37)
  1. XYREM [Suspect]
     Active Substance: SODIUM OXYBATE
     Dosage: 2.25 G, BID
     Route: 048
     Dates: start: 201312
  2. FOLTANX RF [Concomitant]
  3. SIMVASTATIN. [Concomitant]
     Active Substance: SIMVASTATIN
  4. ERY-TAB [Concomitant]
     Active Substance: ERYTHROMYCIN
  5. ATENOLOL. [Concomitant]
     Active Substance: ATENOLOL
  6. TRETINOIN. [Concomitant]
     Active Substance: TRETINOIN
  7. XYREM [Suspect]
     Active Substance: SODIUM OXYBATE
     Dosage: 2.25 G, BID
     Route: 048
     Dates: start: 201003, end: 2012
  8. POLYETHYLENE GLYCOL [Concomitant]
     Active Substance: POLYETHYLENE GLYCOLS
  9. CITALOPRAM [Concomitant]
     Active Substance: CITALOPRAM HYDROBROMIDE
  10. VANDAZOLE [Concomitant]
     Active Substance: METRONIDAZOLE
  11. XYREM [Suspect]
     Active Substance: SODIUM OXYBATE
     Dosage: 2.25 G, BID
     Route: 048
     Dates: start: 201209, end: 2013
  12. GABAPENTIN. [Concomitant]
     Active Substance: GABAPENTIN
  13. REQUIP [Concomitant]
     Active Substance: ROPINIROLE HYDROCHLORIDE
  14. DUREZOL [Concomitant]
     Active Substance: DIFLUPREDNATE
  15. DEXTROAMPHETAMINE. [Concomitant]
     Active Substance: DEXTROAMPHETAMINE
  16. SALINE [Concomitant]
     Active Substance: SODIUM CHLORIDE
  17. OFLOXACIN. [Concomitant]
     Active Substance: OFLOXACIN
  18. CLINDAMYCIN PHOSPHATE. [Concomitant]
     Active Substance: CLINDAMYCIN PHOSPHATE
  19. BUPROPION. [Concomitant]
     Active Substance: BUPROPION
  20. FEXOFENADINE HCL [Concomitant]
     Active Substance: FEXOFENADINE HYDROCHLORIDE
  21. FLUTICASONE [Concomitant]
     Active Substance: FLUTICASONE\FLUTICASONE PROPIONATE
  22. OXYCODONE HYDROCHLORIDE. [Concomitant]
     Active Substance: OXYCODONE HYDROCHLORIDE
  23. ASPIRIN. [Concomitant]
     Active Substance: ASPIRIN
  24. ENALAPRIL MALEATE. [Concomitant]
     Active Substance: ENALAPRIL MALEATE
  25. MINOCYCLINE HCL [Concomitant]
     Active Substance: MINOCYCLINE HYDROCHLORIDE
  26. FUROSEMIDE. [Concomitant]
     Active Substance: FUROSEMIDE
  27. CRESTOR [Concomitant]
     Active Substance: ROSUVASTATIN CALCIUM
  28. VITAMIN D3 [Concomitant]
     Active Substance: CHOLECALCIFEROL
  29. METFORMIN [Concomitant]
     Active Substance: METFORMIN HYDROCHLORIDE
  30. LEVOTHYROXINE. [Concomitant]
     Active Substance: LEVOTHYROXINE
  31. MELOXICAM. [Concomitant]
     Active Substance: MELOXICAM
  32. TRAMADOL. [Concomitant]
     Active Substance: TRAMADOL
  33. XYREM [Suspect]
     Active Substance: SODIUM OXYBATE
     Indication: NARCOLEPSY
     Dosage: 1.5 G, BID
     Route: 048
     Dates: start: 201002, end: 201003
  34. SPIRONOLACTONE. [Concomitant]
     Active Substance: SPIRONOLACTONE
  35. METHYLIN [Concomitant]
     Active Substance: METHYLPHENIDATE HYDROCHLORIDE
  36. OMEPRAZOLE. [Concomitant]
     Active Substance: OMEPRAZOLE
  37. IRON [Concomitant]
     Active Substance: IRON

REACTIONS (2)
  - Malaise [Unknown]
  - Activities of daily living impaired [Unknown]
